FAERS Safety Report 8317629-0 (Version None)
Quarter: 2012Q2

REPORT INFORMATION
  Report Type: 
  Country: None (occurrence: None)
  Receive Date: 20120427
  Receipt Date: 20090619
  Transmission Date: 20120825
  Serious: No
  Sender: FDA-Public Use
  Company Number: US-TEVA-2009007352

PATIENT
  Sex: Female
  Weight: 74.91 kg

DRUGS (5)
  1. NUVIGIL [Suspect]
     Indication: NARCOLEPSY
     Dosage: 500 MILLIGRAM;
     Route: 048
     Dates: start: 20090611
  2. TOPAMAX [Concomitant]
     Dosage: 200 MILLIGRAM;
     Dates: start: 20090101
  3. LAMICTAL [Concomitant]
     Dosage: 600 MILLIGRAM;
     Dates: start: 20050101
  4. SUBUTEX [Concomitant]
     Dosage: 32 MILLIGRAM;
     Dates: start: 20070101
  5. CLONAZEPAM [Concomitant]
     Dosage: 1 MILLIGRAM;
     Dates: start: 20090101

REACTIONS (2)
  - ABDOMINAL DISCOMFORT [None]
  - HEADACHE [None]
